FAERS Safety Report 7939126-4 (Version None)
Quarter: 2011Q4

REPORT INFORMATION
  Report Type: 
  Country: None (occurrence: None)
  Receive Date: 20111124
  Receipt Date: 20111019
  Transmission Date: 20120403
  Serious: Yes (Hospitalization)
  Sender: FDA-Public Use
  Company Number: US-ROCHE-1015534

PATIENT
  Sex: Female
  Weight: 80.358 kg

DRUGS (6)
  1. KLONOPIN [Concomitant]
     Route: 065
  2. COPEGUS [Suspect]
     Indication: HEPATITIS C
     Route: 048
     Dates: start: 20110218, end: 20110717
  3. ATIVAN [Concomitant]
     Route: 065
  4. PEGASYS [Suspect]
     Indication: HEPATITIS C
     Route: 058
     Dates: start: 20110218, end: 20110717
  5. PRISTIQ [Suspect]
     Indication: DEPRESSION
     Route: 048
     Dates: start: 20110208, end: 20110329
  6. PERCOCET [Concomitant]
     Route: 065

REACTIONS (1)
  - CONVULSION [None]
